FAERS Safety Report 6957779-4 (Version None)
Quarter: 2010Q3

REPORT INFORMATION
  Report Type: 
  Country: None (occurrence: None)
  Receive Date: 20100830
  Receipt Date: 20100830
  Transmission Date: 20110219
  Serious: Yes (Hospitalization)
  Sender: FDA-Public Use
  Company Number: None

PATIENT
  Age: 59 Year
  Sex: Male
  Weight: 91 kg

DRUGS (1)
  1. LITHIUM [Suspect]
     Indication: SCHIZOAFFECTIVE DISORDER
     Dosage: 300-600 MG BID PO
     Route: 048
     Dates: start: 20000324

REACTIONS (6)
  - ASTHENIA [None]
  - DYSARTHRIA [None]
  - DYSKINESIA [None]
  - THERAPEUTIC AGENT TOXICITY [None]
  - TREMOR [None]
  - URINARY TRACT INFECTION [None]
